FAERS Safety Report 20743409 (Version 1)
Quarter: 2022Q2

REPORT INFORMATION
  Report Type: Spontaneous
  Country: BG (occurrence: BG)
  Receive Date: 20220425
  Receipt Date: 20220425
  Transmission Date: 20220721
  Serious: Yes (Hospitalization, Other)
  Sender: FDA-Public Use
  Company Number: BG-LUPIN PHARMACEUTICALS INC.-2022-06024

PATIENT
  Age: 42 Year
  Sex: Female

DRUGS (22)
  1. LEVETIRACETAM [Suspect]
     Active Substance: LEVETIRACETAM
     Indication: Epilepsy
     Dosage: UNK
     Route: 065
  2. TOPIRAMATE [Suspect]
     Active Substance: TOPIRAMATE
     Indication: Epilepsy
     Dosage: UNK
     Route: 065
  3. TOPIRAMATE [Suspect]
     Active Substance: TOPIRAMATE
     Dosage: UNK (TITRATION)
     Route: 065
  4. PHENYTOIN SODIUM [Suspect]
     Active Substance: PHENYTOIN SODIUM
     Indication: Epilepsy
     Dosage: UNK
     Route: 042
  5. PHENYTOIN SODIUM [Suspect]
     Active Substance: PHENYTOIN SODIUM
     Dosage: UNK (TITRATION)
     Route: 042
  6. METHYLPREDNISOLONE [Suspect]
     Active Substance: METHYLPREDNISOLONE
     Indication: Cerebral ataxia
     Dosage: 1 GRAM, QD (2 COURSES; FOR 3-5 DAYS)
     Route: 042
  7. METHYLPREDNISOLONE [Suspect]
     Active Substance: METHYLPREDNISOLONE
     Dosage: 1 GRAM, QD ( 1.0 G/DAY OVER 5  DAYS:)
     Route: 042
  8. LACOSAMIDE [Suspect]
     Active Substance: LACOSAMIDE
     Indication: Epilepsy
     Dosage: UNK
     Route: 065
  9. HUMAN IMMUNOGLOBULIN G [Suspect]
     Active Substance: HUMAN IMMUNOGLOBULIN G
     Indication: Immunosuppressant drug therapy
     Dosage: 2 GRAM PER KILOGRAM, QD (2 COURSES OF 2.0 G/KG OVER 5 DAYS)
     Route: 042
  10. HUMAN IMMUNOGLOBULIN G [Suspect]
     Active Substance: HUMAN IMMUNOGLOBULIN G
     Indication: Cerebral ataxia
     Dosage: 2 GRAM PER KILOGRAM, QD (2 COURSES OF 2.0 G/KG OVER 5 DAYS)
     Route: 042
  11. BRIVARACETAM [Suspect]
     Active Substance: BRIVARACETAM
     Indication: Epilepsy
     Dosage: UNK
     Route: 065
  12. LEVOTHYROXINE SODIUM [Concomitant]
     Active Substance: LEVOTHYROXINE SODIUM
     Indication: Hashitoxicosis
     Dosage: 100 MICROGRAM
     Route: 065
  13. ETANERCEPT [Concomitant]
     Active Substance: ETANERCEPT
     Indication: Ankylosing spondylitis
     Dosage: UNK (FOR 2 YEARS)
     Route: 065
  14. OXCARBAZEPINE [Concomitant]
     Active Substance: OXCARBAZEPINE
     Indication: Epilepsy
     Dosage: UNK
     Route: 065
  15. VALPROATE [Concomitant]
     Active Substance: VALPROIC ACID
     Indication: Epilepsy
     Dosage: UNK
     Route: 065
  16. CARBAMAZEPINE [Concomitant]
     Active Substance: CARBAMAZEPINE
     Indication: Epilepsy
     Dosage: UNK
     Route: 065
  17. LAMOTRIGINE [Concomitant]
     Active Substance: LAMOTRIGINE
     Indication: Epilepsy
     Dosage: UNK
     Route: 065
  18. CLONAZEPAM [Concomitant]
     Active Substance: CLONAZEPAM
     Indication: Epilepsy
     Dosage: UNK
     Route: 065
  19. CYCLOPHOSPHAMIDE [Concomitant]
     Active Substance: CYCLOPHOSPHAMIDE
     Indication: Immunosuppressant drug therapy
     Dosage: 600 MILLIGRAM, BID ((TWICE FORTNIGHTLY))
     Route: 042
  20. INSULIN ASPART [Concomitant]
     Active Substance: INSULIN ASPART
     Indication: Diabetes mellitus
     Dosage: 6 INTERNATIONAL UNIT, TID (6 UI THREE TIMES A DAY)
     Route: 065
  21. INSULIN DEGLUDEC [Concomitant]
     Active Substance: INSULIN DEGLUDEC
     Indication: Diabetes mellitus
     Dosage: 16 INTERNATIONAL UNIT, QD (16 UI PER DAY)
     Route: 065
  22. PREDNISOLONE [Concomitant]
     Active Substance: PREDNISOLONE
     Indication: Immunosuppressant drug therapy
     Dosage: 60 MILLIGRAM, QD
     Route: 065

REACTIONS (7)
  - Drug ineffective [Unknown]
  - Drug ineffective for unapproved indication [Unknown]
  - Gait disturbance [Unknown]
  - Diplopia [Unknown]
  - Vertigo [Unknown]
  - Fall [Unknown]
  - Off label use [Unknown]
